FAERS Safety Report 20479707 (Version 9)
Quarter: 2022Q4

REPORT INFORMATION
  Report Type: Report from Study
  Country: US (occurrence: US)
  Receive Date: 20220216
  Receipt Date: 20221230
  Transmission Date: 20230113
  Serious: Yes (Hospitalization, Other)
  Sender: FDA-Public Use
  Company Number: US-HBP-2022US024992

PATIENT
  Age: 90 Year
  Sex: Male

DRUGS (1)
  1. VALCHLOR [Suspect]
     Active Substance: MECHLORETHAMINE
     Indication: Cutaneous T-cell lymphoma
     Dosage: THIN FILM, QD
     Route: 061
     Dates: start: 20211124

REACTIONS (18)
  - Application site ulcer [Not Recovered/Not Resolved]
  - Application site pain [Unknown]
  - Application site infection [Unknown]
  - Application site discharge [Unknown]
  - Cutaneous T-cell lymphoma [Not Recovered/Not Resolved]
  - Skin lesion [Recovering/Resolving]
  - Application site acne [Unknown]
  - Skin exfoliation [Unknown]
  - Skin discolouration [Unknown]
  - Blister rupture [Unknown]
  - Furuncle [Unknown]
  - Application site reaction [Unknown]
  - Application site fissure [Unknown]
  - Application site scab [Not Recovered/Not Resolved]
  - Dry skin [Unknown]
  - Application site erythema [Unknown]
  - Application site vesicles [Unknown]
  - Erythema [Unknown]

NARRATIVE: CASE EVENT DATE: 20211124
